FAERS Safety Report 6071822-9 (Version None)
Quarter: 2009Q1

REPORT INFORMATION
  Report Type: 
  Country: None (occurrence: None)
  Receive Date: 20090210
  Receipt Date: 20090131
  Transmission Date: 20090719
  Serious: Yes (Other)
  Sender: FDA-Public Use
  Company Number: PHHY2009BR03549

PATIENT
  Age: 30 Year
  Sex: Female

DRUGS (5)
  1. TEGRETOL [Suspect]
     Dosage: UNK
     Dates: start: 20090131
  2. FENYTOIN [Suspect]
     Dosage: UNK
     Dates: start: 20090131
  3. CAPTOPRIL [Suspect]
     Dosage: UNK
     Dates: start: 20090131
  4. OMEPRAZOLE [Suspect]
     Dosage: UNK
     Dates: start: 20090131
  5. VODKA [Suspect]
     Dosage: UNK
     Dates: start: 20090131

REACTIONS (3)
  - HYPOTENSION [None]
  - INTENTIONAL OVERDOSE [None]
  - SUICIDE ATTEMPT [None]
